FAERS Safety Report 12315049 (Version 2)
Quarter: 2016Q2

REPORT INFORMATION
  Report Type: Spontaneous
  Country: US (occurrence: US)
  Receive Date: 20160428
  Receipt Date: 20160601
  Transmission Date: 20160815
  Serious: No
  Sender: FDA-Public Use
  Company Number: US-PFIZER INC-2016136727

PATIENT
  Age: 56 Year
  Sex: Female

DRUGS (3)
  1. PERCOCET [Concomitant]
     Active Substance: ACETAMINOPHEN\OXYCODONE HYDROCHLORIDE
     Dosage: [OXYCODONE BITRATE 10MG, PARACETAMOL 325 MG], 4-6 HR
     Dates: start: 2012
  2. LYRICA [Suspect]
     Active Substance: PREGABALIN
     Indication: FIBROMYALGIA
     Dosage: 300 MG, 2X/DAY
     Dates: start: 2014
  3. NORCO [Concomitant]
     Active Substance: ACETAMINOPHEN\HYDROCODONE BITARTRATE
     Dosage: [HYDROCODONE BITARTRATE 10 MG, PARACETAMOL 325 MG]
     Dates: start: 2012

REACTIONS (8)
  - Drug withdrawal syndrome [Unknown]
  - Anxiety [Unknown]
  - Nervousness [Unknown]
  - Overdose [Unknown]
  - Pain [Unknown]
  - Drug effect incomplete [Unknown]
  - Irritability [Unknown]
  - Insomnia [Unknown]

NARRATIVE: CASE EVENT DATE: 2014
